FAERS Safety Report 6251449-6 (Version None)
Quarter: 2009Q2

REPORT INFORMATION
  Report Type: 
  Country: None (occurrence: None)
  Receive Date: 20090630
  Receipt Date: 20090626
  Transmission Date: 20091009
  Serious: Yes (Life-Threatening)
  Sender: FDA-Public Use
  Company Number: JP-BRISTOL-MYERS SQUIBB COMPANY-14622161

PATIENT
  Age: 41 Year
  Sex: Female
  Weight: 56 kg

DRUGS (5)
  1. ERBITUX [Suspect]
     Indication: COLON CANCER
     Dosage: 1ST INF 11MAR09,400 MG/M2 IV 18-MAR-09 MOST RECENT INF(200MG/M2) RECEIVED ON 01MAY09(43 D)
     Route: 042
     Dates: start: 20090311, end: 20090311
  2. IRINOTECAN HCL [Concomitant]
     Indication: COLON CANCER
     Dosage: 1ST INF 11MAR09
     Route: 042
     Dates: start: 20090311
  3. POLARAMINE [Concomitant]
     Indication: PREMEDICATION
     Route: 042
     Dates: start: 20090311
  4. DECADRON [Concomitant]
     Indication: PREMEDICATION
     Route: 042
     Dates: start: 20090311
  5. SEROTONE [Concomitant]
     Indication: ANTIEMETIC SUPPORTIVE CARE
     Route: 042
     Dates: start: 20090311

REACTIONS (1)
  - CEREBRAL INFARCTION [None]
